FAERS Safety Report 16118711 (Version 2)
Quarter: 2019Q2

REPORT INFORMATION
  Report Type: Spontaneous
  Country: US (occurrence: US)
  Receive Date: 20190326
  Receipt Date: 20190410
  Transmission Date: 20190711
  Serious: No
  Sender: FDA-Public Use
  Company Number: US-PFIZER INC-2019124842

PATIENT
  Age: 46 Year
  Sex: Female
  Weight: 58 kg

DRUGS (6)
  1. IRINOTECAN HCL [Suspect]
     Active Substance: IRINOTECAN HYDROCHLORIDE
     Indication: PANCREATIC CARCINOMA
     Dosage: 299 MG, CYCLIC
     Route: 042
  2. OXALIPLATIN. [Suspect]
     Active Substance: OXALIPLATIN
     Indication: PANCREATIC CARCINOMA
     Dosage: 141.1 MG, CYCLIC
  3. OXALIPLATIN. [Suspect]
     Active Substance: OXALIPLATIN
     Dosage: 112.7 MG IN 500ML OF DEXTROSE, CYCLIC
     Route: 042
  4. IRINOTECAN HCL [Suspect]
     Active Substance: IRINOTECAN HYDROCHLORIDE
     Dosage: 290 MG IN 500ML OF DEXTROSE, CYCLIC
     Route: 042
  5. INJECTAFER [Concomitant]
     Active Substance: FERRIC CARBOXYMALTOSE
     Dosage: UNK, WEEKLY (50 MG OF IRON PER ML WEEKLY FOR TWO WEEKS)
  6. DEXTROSE 5% [Concomitant]
     Active Substance: DEXTROSE
     Dosage: UNK

REACTIONS (8)
  - Dyspnoea [Unknown]
  - Dysarthria [Recovering/Resolving]
  - Coordination abnormal [Unknown]
  - Hypoaesthesia [Unknown]
  - Tongue disorder [Recovering/Resolving]
  - Hyperhidrosis [Unknown]
  - Restlessness [Unknown]
  - Tremor [Unknown]

NARRATIVE: CASE EVENT DATE: 20190326
